FAERS Safety Report 9066591 (Version 1)
Quarter: 2013Q1

REPORT INFORMATION
  Report Type: Spontaneous
  Country: JP (occurrence: JP)
  Receive Date: 20130214
  Receipt Date: 20130214
  Transmission Date: 20140127
  Serious: Yes (Hospitalization, Other)
  Sender: FDA-Public Use
  Company Number: JP-009507513-1302JPN004236

PATIENT
  Age: 43 Year
  Sex: Female
  Weight: 61 kg

DRUGS (5)
  1. PEPCID RPD [Suspect]
     Indication: ABDOMINAL PAIN UPPER
     Dosage: 20 MG, UID/QD
     Route: 048
     Dates: start: 20120314, end: 201203
  2. CLARITH [Suspect]
     Indication: HELICOBACTER INFECTION
     Dosage: 400 MG, UNKNOWN/D
     Route: 048
     Dates: start: 20120322, end: 20120328
  3. PASETOCIN [Suspect]
     Indication: HELICOBACTER INFECTION
     Dosage: 1500 MG, UNKNOWN/D
     Route: 048
     Dates: start: 20120322, end: 20120328
  4. TAKEPRON [Suspect]
     Dosage: 60 MG, UNKNOWN/D
     Route: 048
     Dates: start: 20120322, end: 20120328
  5. BUSCOPAN [Concomitant]
     Dosage: UNK
     Dates: start: 20120328

REACTIONS (1)
  - Erythema multiforme [Recovering/Resolving]
